FAERS Safety Report 9032461 (Version 2)
Quarter: 2013Q1

REPORT INFORMATION
  Report Type: Spontaneous
  Country: CN (occurrence: None)
  Receive Date: 20130108
  Receipt Date: 20130115
  Transmission Date: 20140127
  Serious: Yes (Hospitalization)
  Sender: FDA-Public Use
  Company Number: DSA_61674_2013

PATIENT
  Age: 35 Year
  Sex: Female

DRUGS (1)
  1. METRONIDAZOLE (METRONIDAZOLE) [Suspect]
     Indication: PRODUCT USED FOR UNKNOWN INDICATION
     Route: 048
     Dates: start: 20120706, end: 20120706

REACTIONS (6)
  - Acute hepatic failure [None]
  - Hepatic encephalopathy [None]
  - Accidental overdose [None]
  - Restlessness [None]
  - Decreased appetite [None]
  - Platelet count decreased [None]
